FAERS Safety Report 20744066 (Version 1)
Quarter: 2022Q2

REPORT INFORMATION
  Report Type: Spontaneous
  Country: US (occurrence: US)
  Receive Date: 20220425
  Receipt Date: 20220425
  Transmission Date: 20220720
  Serious: Yes (Other)
  Sender: FDA-Public Use
  Company Number: US-USP-000364

PATIENT
  Age: 18 Year
  Sex: Male

DRUGS (1)
  1. AMPHETAMINE [Suspect]
     Active Substance: AMPHETAMINE
     Indication: Product used for unknown indication
     Route: 065

REACTIONS (3)
  - Subarachnoid haemorrhage [Unknown]
  - Aneurysm [Unknown]
  - Basal ganglia haemorrhage [Unknown]
